FAERS Safety Report 17081821 (Version 2)
Quarter: 2020Q2

REPORT INFORMATION
  Report Type: Spontaneous
  Country: US (occurrence: US)
  Receive Date: 20191127
  Receipt Date: 20200402
  Transmission Date: 20200713
  Serious: No
  Sender: FDA-Public Use
  Company Number: US-UCBSA-2018055135

PATIENT
  Age: 67 Year
  Sex: Female
  Weight: 59 kg

DRUGS (5)
  1. AMANTADINE. [Suspect]
     Active Substance: AMANTADINE HYDROCHLORIDE
     Indication: PARKINSON^S DISEASE
     Dosage: 274 MG, ONCE DAILY (QD)
     Route: 048
     Dates: start: 20180713
  2. NEUPRO [Suspect]
     Active Substance: ROTIGOTINE
     Indication: PARKINSON^S DISEASE
     Dosage: UNK
     Dates: end: 201809
  3. AZILECT [Concomitant]
     Active Substance: RASAGILINE MESYLATE
     Indication: PRODUCT USED FOR UNKNOWN INDICATION
  4. AMANTADINE. [Concomitant]
     Active Substance: AMANTADINE HYDROCHLORIDE
     Indication: PARKINSON^S DISEASE
     Dosage: 100 MG, 2X/DAY (BID)
  5. CARBIDOPA AND LEVODOPA [Concomitant]
     Active Substance: CARBIDOPA\LEVODOPA
     Indication: PRODUCT USED FOR UNKNOWN INDICATION

REACTIONS (4)
  - Feeling abnormal [Recovered/Resolved]
  - Somnolence [Unknown]
  - Fatigue [Unknown]
  - Hallucination, visual [Recovering/Resolving]

NARRATIVE: CASE EVENT DATE: 201807
